FAERS Safety Report 14205761 (Version 1)
Quarter: 2017Q4

REPORT INFORMATION
  Report Type: Spontaneous
  Country: US (occurrence: US)
  Receive Date: 20171120
  Receipt Date: 20171120
  Transmission Date: 20180321
  Serious: Yes (Hospitalization)
  Sender: FDA-Public Use
  Company Number: US-PROCTER+GAMBLE-GS17127738

PATIENT
  Age: 67 Year
  Sex: Female
  Weight: 110.2 kg

DRUGS (2)
  1. NYQUIL NOS [Suspect]
     Active Substance: ACETAMINOPHEN\CHLORPHENIRAMINE\DEXTROMETHORPHAN\DIPHENHYDRAMINE\DOXYLAMINE\PSEUDOEPHEDRINE
     Indication: NASOPHARYNGITIS
     Route: 048
  2. NOVOLOG [Suspect]
     Active Substance: INSULIN ASPART
     Indication: TYPE 2 DIABETES MELLITUS
     Dosage: SLIDING SCALE
     Route: 058

REACTIONS (2)
  - Language disorder [Recovered/Resolved]
  - Blood glucose increased [Recovered/Resolved]

NARRATIVE: CASE EVENT DATE: 20170928
